FAERS Safety Report 9160149 (Version 1)
Quarter: 2013Q1

REPORT INFORMATION
  Report Type: Spontaneous
  Country: AU (occurrence: AU)
  Receive Date: 20130313
  Receipt Date: 20130313
  Transmission Date: 20140127
  Serious: Yes (Death, Hospitalization)
  Sender: FDA-Public Use
  Company Number: AU-ROCHE-1150922

PATIENT
  Sex: Female

DRUGS (2)
  1. XELODA [Suspect]
     Indication: COLON CANCER
     Route: 048
  2. OXALIPLATIN [Concomitant]
     Indication: COLON CANCER

REACTIONS (1)
  - Diarrhoea [Fatal]
